FAERS Safety Report 8816638 (Version 1)
Quarter: 2012Q4

REPORT INFORMATION
  Report Type: Spontaneous
  Country: US (occurrence: None)
  Receive Date: 20120928
  Receipt Date: 20120928
  Transmission Date: 20130627
  Serious: Yes (Life-Threatening, Hospitalization)
  Sender: FDA-Public Use
  Company Number: None

PATIENT
  Age: 27 Year
  Sex: Female
  Weight: 65.77 kg

DRUGS (1)
  1. MIRENA IUD [Suspect]

REACTIONS (5)
  - Device dislocation [None]
  - Caesarean section [None]
  - Procedural complication [None]
  - Uterine perforation [None]
  - Haemorrhage [None]
